FAERS Safety Report 6965794-X (Version None)
Quarter: 2010Q3

REPORT INFORMATION
  Report Type: 
  Country: None (occurrence: None)
  Receive Date: 20100823
  Receipt Date: 20100713
  Transmission Date: 20110219
  Serious: No
  Sender: FDA-Public Use
  Company Number: 014421

PATIENT
  Sex: Female
  Weight: 86.1 kg

DRUGS (5)
  1. CIMZIA [Suspect]
     Indication: CROHN'S DISEASE
     Dosage: (400 MG 1X/2 WEEKS SUBCUTANEOUS)
     Route: 058
     Dates: start: 20090715
  2. DARVOCET [Concomitant]
  3. CORTICOSTEROID NOS [Concomitant]
  4. CRESTOR [Concomitant]
  5. CYMBALTA [Concomitant]

REACTIONS (2)
  - INJECTION SITE REACTION [None]
  - MEDICATION ERROR [None]
